FAERS Safety Report 5837917-7 (Version None)
Quarter: 2008Q3

REPORT INFORMATION
  Report Type: 
  Country: None (occurrence: None)
  Receive Date: 20080808
  Receipt Date: 20080801
  Transmission Date: 20090109
  Serious: Yes (Other)
  Sender: FDA-Public Use
  Company Number: US-JNJCH-2008020277

PATIENT
  Age: 14 Year
  Sex: Male
  Weight: 116 kg

DRUGS (1)
  1. ZYRTEC [Suspect]
     Indication: HEADACHE
     Dosage: TEXT:1 TABLET ONCE PER DAY
     Route: 048
     Dates: start: 20080728, end: 20080729

REACTIONS (7)
  - DYSPNOEA [None]
  - HALLUCINATION [None]
  - HYPERHIDROSIS [None]
  - INCOHERENT [None]
  - LIP SWELLING [None]
  - LOSS OF CONSCIOUSNESS [None]
  - SWOLLEN TONGUE [None]
